FAERS Safety Report 5472338-0 (Version None)
Quarter: 2007Q3

REPORT INFORMATION
  Report Type: 
  Country: None (occurrence: None)
  Receive Date: 20070930
  Receipt Date: 20070926
  Transmission Date: 20080115
  Serious: Yes (Other)
  Sender: FDA-Public Use
  Company Number: US-SHR-US-2006-018923

PATIENT
  Sex: Female

DRUGS (1)
  1. MIRENA [Suspect]
     Dosage: 20 A?G/DAY, CONT
     Route: 015

REACTIONS (1)
  - PULMONARY EMBOLISM [None]
